FAERS Safety Report 6533007-9 (Version None)
Quarter: 2010Q1

REPORT INFORMATION
  Report Type: 
  Country: None (occurrence: None)
  Receive Date: 20100111
  Receipt Date: 20100104
  Transmission Date: 20100710
  Serious: Yes (Other)
  Sender: FDA-Public Use
  Company Number: PHHY2009CA54604

PATIENT
  Sex: Male

DRUGS (11)
  1. ALISKIREN ALI+ [Suspect]
     Indication: HYPERTENSION
     Dosage: 150 PER DAY
     Route: 048
     Dates: start: 20090908, end: 20091208
  2. ALISKIREN ALI+ [Suspect]
     Indication: DIABETES MELLITUS
  3. DIURETICS [Concomitant]
  4. ANGIOTENSIN II ANTAGONISTS [Concomitant]
  5. CALCIUM CHANNEL BLOCKERS [Concomitant]
  6. METFORMIN [Concomitant]
     Dosage: 500 MG, TID
     Dates: end: 20091208
  7. CRESTOR [Concomitant]
     Dosage: 20 MG DAILY
  8. NEXIUM [Concomitant]
     Dosage: 40 MG DAILY
  9. AMLODIPINE [Concomitant]
     Dosage: 5 MG DAILY
  10. COVERSYL PLUS [Concomitant]
     Dosage: 4 MG DAILY
  11. SPIRIVA [Concomitant]
     Dosage: 18 UGM DAILY

REACTIONS (2)
  - DRUG INEFFECTIVE [None]
  - RENAL FAILURE [None]
